FAERS Safety Report 24150218 (Version 1)
Quarter: 2024Q3

REPORT INFORMATION
  Report Type: Spontaneous
  Country: GB (occurrence: GB)
  Receive Date: 20240730
  Receipt Date: 20240730
  Transmission Date: 20241016
  Serious: Yes (Hospitalization)
  Sender: CELLTRION
  Company Number: GB-CELLTRION INC.-2024GB018002

PATIENT

DRUGS (1)
  1. YUFLYMA [Suspect]
     Active Substance: ADALIMUMAB-AATY
     Indication: Psoriatic arthropathy
     Dosage: 40MG PEN PK2
     Route: 058
     Dates: start: 202407

REACTIONS (4)
  - Hospitalisation [Unknown]
  - Contusion [Unknown]
  - Pharyngitis streptococcal [Unknown]
  - Intentional dose omission [Unknown]
